FAERS Safety Report 5305701-9 (Version None)
Quarter: 2007Q2

REPORT INFORMATION
  Report Type: 
  Country: None (occurrence: None)
  Receive Date: 20070423
  Receipt Date: 20070423
  Transmission Date: 20071010
  Serious: Yes (Other)
  Sender: FDA-Public Use
  Company Number: None

PATIENT
  Age: 58 Year
  Sex: Male
  Weight: 99.3377 kg

DRUGS (15)
  1. INSULIN GLARGINE 75 UNITS QAM [Suspect]
  2. INSULIN-ASPART 8-10 UNITS WITH MEALS PRN [Suspect]
  3. GLIMEPIRIDE [Concomitant]
  4. METOPROLOL SUCCINATE EXTENDED RELEASE [Concomitant]
  5. FENOFIBRATE [Concomitant]
  6. MIRTAZAPINE [Concomitant]
  7. SERTRALINE [Concomitant]
  8. TRAZODONE HCL [Concomitant]
  9. FELODIPINE [Concomitant]
  10. ROSIGLITAZONE [Concomitant]
  11. ERGOCALCIFEROL [Concomitant]
  12. SIMVASTATIN [Concomitant]
  13. FUROSEMIDE [Concomitant]
  14. CALCIUM/VIT D [Concomitant]
  15. GABAPENTIN [Concomitant]

REACTIONS (3)
  - BLOOD GLUCOSE INCREASED [None]
  - HYPOGLYCAEMIA [None]
  - RHEUMATOID ARTHRITIS [None]
